FAERS Safety Report 7329054-X (Version None)
Quarter: 2011Q1

REPORT INFORMATION
  Report Type: 
  Country: None (occurrence: None)
  Receive Date: 20110303
  Receipt Date: 20110222
  Transmission Date: 20110831
  Serious: Yes (Hospitalization, Other)
  Sender: FDA-Public Use
  Company Number: FR-PFIZER INC-2011035258

PATIENT
  Age: 5 Year
  Sex: Male

DRUGS (5)
  1. UN-ALFA [Concomitant]
     Indication: RENAL FAILURE
  2. FERROSTRANE [Concomitant]
     Indication: RENAL FAILURE
  3. GENOTONORM [Suspect]
     Indication: BODY HEIGHT BELOW NORMAL
     Dosage: 0.9 MG, 1X/DAY
     Dates: start: 20100831, end: 20110214
  4. CALCIDIA [Concomitant]
     Indication: RENAL FAILURE
  5. SODIUM BICARBONATE [Concomitant]
     Indication: RENAL FAILURE

REACTIONS (4)
  - EYELID OEDEMA [None]
  - NEPHROTIC SYNDROME [None]
  - FACE OEDEMA [None]
  - RENAL FAILURE ACUTE [None]
